FAERS Safety Report 12855997 (Version 1)
Quarter: 2016Q4

REPORT INFORMATION
  Report Type: Spontaneous
  Country: US (occurrence: US)
  Receive Date: 20161017
  Receipt Date: 20161017
  Transmission Date: 20170207
  Serious: Yes (Other)
  Sender: FDA-Public Use
  Company Number: None

PATIENT
  Age: 75 Year
  Sex: Female
  Weight: 77.4 kg

DRUGS (9)
  1. TRAZODONE [Concomitant]
     Active Substance: TRAZODONE HYDROCHLORIDE
  2. FISH OIL [Concomitant]
     Active Substance: FISH OIL
  3. VALSARTAN. [Concomitant]
     Active Substance: VALSARTAN
  4. VITAMINS NOS [Concomitant]
     Active Substance: VITAMINS
  5. ESTRADIOL. [Concomitant]
     Active Substance: ESTRADIOL
  6. BUPROPION SR 150 MG ACTAVIS [Suspect]
     Active Substance: BUPROPION
     Indication: DEPRESSION
     Dosage: ?          QUANTITY:1 TABLET(S);?
     Route: 048
     Dates: start: 20161014, end: 20161015
  7. B-6 [Concomitant]
  8. D-3 [Concomitant]
     Active Substance: CHOLECALCIFEROL
  9. FLUOXETINE [Concomitant]
     Active Substance: FLUOXETINE HYDROCHLORIDE

REACTIONS (4)
  - Swollen tongue [None]
  - Product quality issue [None]
  - Middle insomnia [None]
  - Dyspnoea [None]

NARRATIVE: CASE EVENT DATE: 20161015
